FAERS Safety Report 5404295-7 (Version None)
Quarter: 2007Q3

REPORT INFORMATION
  Report Type: 
  Country: None (occurrence: None)
  Receive Date: 20070731
  Receipt Date: 20070717
  Transmission Date: 20080115
  Serious: Yes (Other)
  Sender: FDA-Public Use
  Company Number: TNZFR200700076

PATIENT
  Age: 86 Year
  Sex: Female

DRUGS (1)
  1. INNOHEP [Suspect]
     Indication: THROMBOPHLEBITIS SUPERFICIAL
     Dosage: 20,000 ANTI XA IU/ML, SUBCUTANEOUS
     Dates: start: 20070701

REACTIONS (2)
  - RENAL FAILURE ACUTE [None]
  - RHABDOMYOLYSIS [None]
